FAERS Safety Report 19230081 (Version 2)
Quarter: 2021Q3

REPORT INFORMATION
  Report Type: Spontaneous
  Country: US (occurrence: US)
  Receive Date: 20210506
  Receipt Date: 20210909
  Transmission Date: 20211014
  Serious: Yes (Life-Threatening, Hospitalization, Other)
  Sender: FDA-Public Use
  Company Number: US-DRREDDYS-USA/USA/21/0135144

PATIENT
  Age: 31 Year
  Sex: Male

DRUGS (1)
  1. ISOTRETINOIN NOT OTHERWISE SPECIFIED [Suspect]
     Active Substance: ISOTRETINOIN
     Indication: ACNE
     Route: 048

REACTIONS (4)
  - Electrocardiogram ST segment elevation [Unknown]
  - Acute coronary syndrome [Unknown]
  - Myocardial infarction [Unknown]
  - Coronary artery stenosis [Unknown]
